FAERS Safety Report 5804645-3 (Version None)
Quarter: 2008Q3

REPORT INFORMATION
  Report Type: 
  Country: None (occurrence: None)
  Receive Date: 20080709
  Receipt Date: 20080630
  Transmission Date: 20090109
  Serious: Yes (Hospitalization)
  Sender: FDA-Public Use
  Company Number: FR-ELI_LILLY_AND_COMPANY-FR200805002439

PATIENT
  Age: 73 Year
  Sex: Female

DRUGS (6)
  1. FORTEO [Suspect]
     Indication: OSTEOPOROSIS
     Dosage: 20 UG, DAILY (1/D)
     Route: 058
     Dates: start: 20070319, end: 20080228
  2. FORTEO [Suspect]
     Dosage: 20 UG, DAILY (1/D)
     Route: 058
     Dates: start: 20080411
  3. AMIODARONE HCL [Concomitant]
  4. KARDEGIC [Concomitant]
  5. ATENOLOL [Concomitant]
  6. ATACAND [Concomitant]

REACTIONS (1)
  - AORTIC VALVE REPLACEMENT [None]
